FAERS Safety Report 26167007 (Version 1)
Quarter: 2025Q4

REPORT INFORMATION
  Report Type: Spontaneous
  Country: US (occurrence: US)
  Receive Date: 20251217
  Receipt Date: 20251217
  Transmission Date: 20260117
  Serious: No
  Sender: SANOFI AVENTIS
  Company Number: US-SA-2025SA372141

PATIENT
  Age: 30 Year
  Sex: Male

DRUGS (2)
  1. ELOCTATE [Suspect]
     Active Substance: EFMOROCTOCOG ALFA
     Dosage: 3500 U
     Route: 042
  2. ELOCTATE [Suspect]
     Active Substance: EFMOROCTOCOG ALFA
     Dosage: 3500 U
     Route: 042

REACTIONS (3)
  - Haemorrhage [Unknown]
  - Gait disturbance [Unknown]
  - Joint swelling [Unknown]

NARRATIVE: CASE EVENT DATE: 20251207
